FAERS Safety Report 5843685-5 (Version None)
Quarter: 2008Q3

REPORT INFORMATION
  Report Type: 
  Country: None (occurrence: None)
  Receive Date: 20080808
  Receipt Date: 20080728
  Transmission Date: 20090109
  Serious: Yes (Hospitalization)
  Sender: FDA-Public Use
  Company Number: 14279087

PATIENT
  Age: 24 Year
  Sex: Female

DRUGS (2)
  1. REVIA [Suspect]
     Dosage: 1 DOSAGE FORM 1 DAY
  2. METHADONE HCL [Suspect]
     Dosage: 20 MILLILITER

REACTIONS (8)
  - ABDOMINAL PAIN [None]
  - ANXIETY [None]
  - CHILLS [None]
  - DRUG INTERACTION [None]
  - DRUG WITHDRAWAL SYNDROME [None]
  - MYALGIA [None]
  - MYDRIASIS [None]
  - TREMOR [None]
